FAERS Safety Report 5507698-5 (Version None)
Quarter: 2007Q4

REPORT INFORMATION
  Report Type: 
  Country: None (occurrence: None)
  Receive Date: 20071106
  Receipt Date: 20071102
  Transmission Date: 20080405
  Serious: Yes (Disabling, Other)
  Sender: FDA-Public Use
  Company Number: B0493764A

PATIENT
  Age: 62 Year
  Sex: Female
  Weight: 104 kg

DRUGS (5)
  1. AVANDAMET [Suspect]
     Route: 048
     Dates: start: 20060426, end: 20070213
  2. GLICLAZIDE [Concomitant]
     Dosage: 320MG PER DAY
     Route: 048
     Dates: start: 20010904
  3. METFORMIN HCL [Concomitant]
     Dosage: 850MG PER DAY
     Route: 048
     Dates: start: 19990702
  4. LEVEMIR [Concomitant]
     Route: 058
     Dates: start: 20070824
  5. ATORVASTATIN CALCIUM [Concomitant]
     Route: 048
     Dates: start: 20000711

REACTIONS (1)
  - OSTEOPOROTIC FRACTURE [None]
